FAERS Safety Report 14394208 (Version 1)
Quarter: 2018Q1

REPORT INFORMATION
  Report Type: Spontaneous
  Country: FR (occurrence: FR)
  Receive Date: 20180116
  Receipt Date: 20180116
  Transmission Date: 20180509
  Serious: Yes (Hospitalization)
  Sender: FDA-Public Use
  Company Number: FR-TEVA-2018-FR-843415

PATIENT
  Age: 67 Year
  Sex: Male

DRUGS (5)
  1. ETOPOSIDE. [Suspect]
     Active Substance: ETOPOSIDE
     Indication: B-CELL LYMPHOMA
     Dosage: NOT SPECIFIED
     Dates: start: 20170809, end: 20170811
  2. MESNA EG 100 MG/ML, SOLUTION INJECTABLE POUR PERFUSION [Suspect]
     Active Substance: MESNA
     Indication: B-CELL LYMPHOMA
     Dosage: NON RENSEIGN?E
     Dates: start: 20170810, end: 20170810
  3. CYCLOPHOSPHAMIDE. [Suspect]
     Active Substance: CYCLOPHOSPHAMIDE
     Indication: B-CELL LYMPHOMA
     Dosage: NOT SPECIFIED
     Dates: start: 20170810, end: 20170810
  4. IFOSFAMIDE EG [Suspect]
     Active Substance: IFOSFAMIDE
     Indication: B-CELL LYMPHOMA
     Dosage: NOT SPECIFIED
     Dates: start: 20170810, end: 20170810
  5. RITUXIMAB ((MAMMIFERE/HAMSTER/CELLULES CHO)) [Suspect]
     Active Substance: RITUXIMAB
     Indication: B-CELL LYMPHOMA
     Dosage: NOT SPECIFIED
     Dates: start: 20170809, end: 20170809

REACTIONS (1)
  - Encephalopathy [Recovered/Resolved]

NARRATIVE: CASE EVENT DATE: 20170811
